FAERS Safety Report 9369344 (Version 1)
Quarter: 2013Q2

REPORT INFORMATION
  Report Type: Spontaneous
  Country: US (occurrence: US)
  Receive Date: 20130626
  Receipt Date: 20130626
  Transmission Date: 20140414
  Serious: Yes (Other)
  Sender: FDA-Public Use
  Company Number: US-AMGEN-USASP2013044042

PATIENT
  Sex: Female

DRUGS (3)
  1. PROLIA [Suspect]
     Indication: OSTEOPOROSIS POSTMENOPAUSAL
     Dosage: UNK
     Dates: start: 20130409
  2. CALCIUM [Concomitant]
  3. VITAMIN D                          /00107901/ [Concomitant]

REACTIONS (7)
  - Muscular weakness [Unknown]
  - Tenderness [Unknown]
  - Paraesthesia [Unknown]
  - Retching [Unknown]
  - Muscle spasms [Not Recovered/Not Resolved]
  - Nausea [Unknown]
  - Pain in extremity [Recovered/Resolved]
